FAERS Safety Report 4690348-8 (Version None)
Quarter: 2005Q2

REPORT INFORMATION
  Report Type: 
  Country: None (occurrence: None)
  Receive Date: 20050615
  Receipt Date: 20050608
  Transmission Date: 20051028
  Serious: Yes (Other)
  Sender: FDA-Public Use
  Company Number: PHRM2005FR01803

PATIENT
  Age: 53 Year
  Sex: Female

DRUGS (3)
  1. ESTRADIOL [Suspect]
     Indication: MENOPAUSE
     Dosage: 37.5 A?G/24 H
     Route: 062
     Dates: start: 20050601, end: 20050606
  2. RIVOTRIL [Concomitant]
     Dates: end: 20050607
  3. BETA BLOCKING AGENTS [Concomitant]
     Dates: start: 20041201, end: 20050607

REACTIONS (4)
  - APPLICATION SITE URTICARIA [None]
  - DYSPNOEA [None]
  - LARYNGEAL OEDEMA [None]
  - URTICARIA [None]
